FAERS Safety Report 18886744 (Version 1)
Quarter: 2021Q1

REPORT INFORMATION
  Report Type: Report from Study
  Country: NL (occurrence: NL)
  Receive Date: 20210212
  Receipt Date: 20210212
  Transmission Date: 20210420
  Serious: Yes (Other)
  Sender: FDA-Public Use
  Company Number: NVSC2020NL250822

PATIENT
  Sex: Female

DRUGS (1)
  1. GILENYA [Suspect]
     Active Substance: FINGOLIMOD HYDROCHLORIDE
     Indication: MULTIPLE SCLEROSIS
     Dosage: 0.5 MG, QD (1.00 X PER DAY)
     Route: 048

REACTIONS (7)
  - Liver function test increased [Not Recovered/Not Resolved]
  - Cystitis [Not Recovered/Not Resolved]
  - Neck pain [Not Recovered/Not Resolved]
  - Dysphagia [Not Recovered/Not Resolved]
  - Cystitis [Recovered/Resolved]
  - Limb discomfort [Not Recovered/Not Resolved]
  - Mood altered [Not Recovered/Not Resolved]
